FAERS Safety Report 10385772 (Version 1)
Quarter: 2014Q3

REPORT INFORMATION
  Report Type: Spontaneous
  Country: US (occurrence: US)
  Receive Date: 20140814
  Receipt Date: 20140814
  Transmission Date: 20150326
  Serious: No
  Sender: FDA-Public Use
  Company Number: US-ASTRAZENECA-2014SE57016

PATIENT
  Sex: Male

DRUGS (1)
  1. QUETIAPINE FUMURATE [Suspect]
     Active Substance: QUETIAPINE FUMARATE
     Dosage: GENERIC
     Route: 065

REACTIONS (1)
  - Blood pressure fluctuation [Not Recovered/Not Resolved]
